FAERS Safety Report 7150123-1 (Version None)
Quarter: 2010Q4

REPORT INFORMATION
  Report Type: 
  Country: None (occurrence: None)
  Receive Date: 20101207
  Receipt Date: 20101207
  Transmission Date: 20110411
  Serious: Yes (Disabling)
  Sender: FDA-Public Use
  Company Number: None

PATIENT
  Sex: Male
  Weight: 68.0396 kg

DRUGS (1)
  1. AMPYRA [Suspect]
     Indication: MULTIPLE SCLEROSIS
     Dosage: 10MG Q12 HOURS ORAL
     Route: 048
     Dates: start: 20101103, end: 20101107

REACTIONS (4)
  - ABASIA [None]
  - ARTHROPATHY [None]
  - CONDITION AGGRAVATED [None]
  - MULTIPLE SCLEROSIS [None]
